FAERS Safety Report 15387237 (Version 1)
Quarter: 2018Q4

REPORT INFORMATION
  Report Type: Spontaneous
  Country: US (occurrence: US)
  Receive Date: 20180914
  Receipt Date: 20180914
  Transmission Date: 20190204
  Serious: No
  Sender: FDA-Public Use
  Company Number: US-SA-2018SA250099

PATIENT
  Age: 91 Year
  Sex: Female

DRUGS (1)
  1. GOLD BOND PAIN AND ITCH [Suspect]
     Active Substance: BENZETHONIUM CHLORIDE\LIDOCAINE
     Route: 065

REACTIONS (1)
  - Product container issue [Unknown]

NARRATIVE: CASE EVENT DATE: 20180904
